FAERS Safety Report 8878583 (Version 1)
Quarter: 2012Q4

REPORT INFORMATION
  Report Type: 
  Country: DE (occurrence: DE)
  Receive Date: 20121030
  Receipt Date: 20121030
  Transmission Date: 20130627
  Serious: Yes (Other)
  Sender: FDA-Public Use
  Company Number: DE-JNJFOC-20121013317

PATIENT
  Age: 8 None
  Sex: Female
  Weight: 94 kg

DRUGS (7)
  1. XARELTO [Suspect]
     Indication: ATRIAL FIBRILLATION
     Route: 048
     Dates: start: 20120529, end: 20120914
  2. XARELTO [Suspect]
     Indication: CEREBROVASCULAR ACCIDENT PROPHYLAXIS
     Route: 048
     Dates: start: 20120529, end: 20120914
  3. ATACAND D [Concomitant]
     Route: 065
  4. AMIODARON [Concomitant]
     Route: 065
  5. BISOPROLOL [Concomitant]
     Route: 065
  6. XIPAMID [Concomitant]
     Route: 065
  7. SALBUTAMOL [Concomitant]
     Route: 065

REACTIONS (4)
  - Cardiac failure [Unknown]
  - Feeling hot [Unknown]
  - Headache [Unknown]
  - Sleep disorder [Unknown]
